FAERS Safety Report 5279225-1 (Version None)
Quarter: 2007Q1

REPORT INFORMATION
  Report Type: 
  Country: None (occurrence: None)
  Receive Date: 20061213
  Receipt Date: 20060719
  Transmission Date: 20070707
  Serious: Yes (Other)
  Sender: FDA-Public Use
  Company Number: 2006UW08554

PATIENT
  Age: 55 Year
  Sex: Female
  Weight: 77.11 kg

DRUGS (7)
  1. SEROQUEL [Suspect]
     Indication: ANXIETY
     Dosage: 400 MG BID; PO
     Route: 048
     Dates: start: 20060428, end: 20060501
  2. SEROQUEL [Suspect]
     Indication: BIPOLAR DISORDER
     Dosage: 400 MG BID; PO
     Route: 048
     Dates: start: 20060428, end: 20060501
  3. SEROQUEL [Suspect]
     Indication: DEPRESSION
     Dosage: 400 MG BID; PO
     Route: 048
     Dates: start: 20060428, end: 20060501
  4. SERZONE [Suspect]
  5. FLUOXETINE [Concomitant]
  6. AMBIEN [Concomitant]
  7. XANAX [Concomitant]

REACTIONS (7)
  - DIZZINESS [None]
  - DRY MOUTH [None]
  - MEDICATION ERROR [None]
  - NASAL DRYNESS [None]
  - NERVOUSNESS [None]
  - SOMNOLENCE [None]
  - VERTIGO [None]
